FAERS Safety Report 9258062 (Version 2)
Quarter: 2013Q2

REPORT INFORMATION
  Report Type: Spontaneous
  Country: CA (occurrence: CA)
  Receive Date: 20130426
  Receipt Date: 20130509
  Transmission Date: 20140414
  Serious: Yes (Other)
  Sender: FDA-Public Use
  Company Number: CA-AMGEN-CANSP2013027619

PATIENT
  Age: 49 Year
  Sex: Female

DRUGS (5)
  1. ENBREL [Suspect]
     Indication: ANKYLOSING SPONDYLITIS
     Dosage: 50 MG, EVERY 9 WEEKS
     Dates: start: 20110308
  2. NAPROSYN /00256201/ [Suspect]
     Dosage: UNK
  3. ANALGESICS [Concomitant]
     Dosage: UNK
  4. MEDROXIPROGESTERON [Concomitant]
     Dosage: UNK
  5. CIPRO                              /00697201/ [Concomitant]
     Dosage: UNK

REACTIONS (3)
  - Neurosensory hypoacusis [Not Recovered/Not Resolved]
  - Tinnitus [Not Recovered/Not Resolved]
  - Urinary tract infection [Unknown]
